FAERS Safety Report 8524679-8 (Version None)
Quarter: 2012Q3

REPORT INFORMATION
  Report Type: 
  Country: None (occurrence: None)
  Receive Date: 20120720
  Receipt Date: 20120716
  Transmission Date: 20120928
  Serious: No
  Sender: FDA-Public Use
  Company Number: US-009507513-1207USA005269

PATIENT

DRUGS (7)
  1. TELAPREVIR [Suspect]
  2. ACETAMINOPHEN [Concomitant]
  3. PEG-INTRON [Suspect]
     Indication: HEPATITIS C
     Dosage: 150 MICROGRAM, QW
     Route: 058
     Dates: start: 20120707
  4. HYDROCODONE BITARTRATE [Concomitant]
  5. RIBASPHERE [Suspect]
  6. RIBAVIRIN [Suspect]
  7. CELEBREX [Concomitant]

REACTIONS (2)
  - FATIGUE [None]
  - MOOD ALTERED [None]
